FAERS Safety Report 7965441-4 (Version None)
Quarter: 2011Q4

REPORT INFORMATION
  Report Type: 
  Country: None (occurrence: None)
  Receive Date: 20111205
  Receipt Date: 20111123
  Transmission Date: 20120403
  Serious: Yes (Hospitalization)
  Sender: FDA-Public Use
  Company Number: DSJ-2011-25371

PATIENT
  Age: 64 Year
  Sex: Female

DRUGS (2)
  1. SIMVASTATIN [Concomitant]
  2. BENICAR [Suspect]
     Indication: HYPERTENSION
     Dosage: 20 MG (1 IN 1 D), PER ORAL
     Route: 048
     Dates: start: 20101101, end: 20111101

REACTIONS (1)
  - VASCULAR GRAFT [None]
